FAERS Safety Report 12653211 (Version 1)
Quarter: 2016Q3

REPORT INFORMATION
  Report Type: Spontaneous
  Country: US (occurrence: US)
  Receive Date: 20160815
  Receipt Date: 20160815
  Transmission Date: 20161109
  Serious: No
  Sender: FDA-Public Use
  Company Number: US-ENDO PHARMACEUTICALS INC.-2016-002266

PATIENT
  Age: 74 Year
  Sex: Male
  Weight: 87.62 kg

DRUGS (2)
  1. LACTULOSE ORAL SOLUTION [Suspect]
     Active Substance: LACTULOSE
     Indication: CONSTIPATION
     Dosage: 3/4 TABLESPOON ONCE DAILY
     Route: 048
     Dates: start: 20160316, end: 20160317
  2. LACTULOSE ORAL SOLUTION [Suspect]
     Active Substance: LACTULOSE
     Dosage: A LITTLE OVER 1 TABLESPOON ONCE DAILY
     Route: 048
     Dates: start: 20160317

REACTIONS (1)
  - Drug ineffective [Unknown]

NARRATIVE: CASE EVENT DATE: 201603
